FAERS Safety Report 9220564 (Version 1)
Quarter: 2013Q2

REPORT INFORMATION
  Report Type: Spontaneous
  Country: US (occurrence: US)
  Receive Date: 20130409
  Receipt Date: 20130409
  Transmission Date: 20140414
  Serious: No
  Sender: FDA-Public Use
  Company Number: US-ASTRAZENECA-2013SE20055

PATIENT
  Age: 36 Year
  Sex: Female
  Weight: 68 kg

DRUGS (11)
  1. ARIMIDEX [Suspect]
     Indication: BREAST CANCER STAGE IV
     Route: 048
     Dates: start: 20130315, end: 20130324
  2. EFFEXOR [Concomitant]
     Indication: HOT FLUSH
     Route: 048
  3. LORAZEPAM [Concomitant]
     Indication: ANXIETY
     Dosage: 2 TABS DAILY
     Route: 048
  4. LORAZEPAM [Concomitant]
     Indication: INSOMNIA
     Dosage: 2 TABS DAILY
     Route: 048
  5. LORAZEPAM [Concomitant]
     Indication: NAUSEA
     Dosage: 2 TABS DAILY
     Route: 048
  6. ZOFRAN [Concomitant]
     Indication: NAUSEA
     Dosage: DAILY
     Route: 048
  7. COLACE [Concomitant]
     Indication: FAECES HARD
     Dosage: BID
     Route: 048
  8. TOPIRAMATE [Concomitant]
     Indication: MIGRAINE PROPHYLAXIS
     Route: 048
  9. AMBIEN [Concomitant]
     Indication: INSOMNIA
     Dosage: PRN
     Route: 048
  10. CATAPRES [Concomitant]
     Indication: HOT FLUSH
     Route: 048
  11. AMITRITPYLINE [Concomitant]
     Indication: MIGRAINE
     Dosage: 1 - 3 TABS PRN
     Route: 048

REACTIONS (4)
  - Breast discharge [Unknown]
  - Herpes zoster [Unknown]
  - Limb discomfort [Unknown]
  - Pain in extremity [Unknown]
